FAERS Safety Report 8509433-5 (Version None)
Quarter: 2012Q3

REPORT INFORMATION
  Report Type: 
  Country: None (occurrence: None)
  Receive Date: 20120713
  Receipt Date: 20120703
  Transmission Date: 20120928
  Serious: Yes (Hospitalization, Other)
  Sender: FDA-Public Use
  Company Number: US-MSD-1107USA03268

PATIENT

DRUGS (1)
  1. FOSAMAX [Suspect]
     Indication: OSTEOPOROSIS
     Dosage: 70 MG, QW
     Route: 048
     Dates: end: 20100901

REACTIONS (12)
  - APPENDICECTOMY [None]
  - CHOLECYSTECTOMY [None]
  - DEMENTIA [None]
  - FEMUR FRACTURE [None]
  - EAR OPERATION [None]
  - SCIATICA [None]
  - OSTEOARTHRITIS [None]
  - TONSILLECTOMY [None]
  - HYPERTENSION [None]
  - INTERVERTEBRAL DISCITIS [None]
  - BLOOD CHOLESTEROL INCREASED [None]
  - URINARY TRACT INFECTION [None]
